FAERS Safety Report 15082642 (Version 1)
Quarter: 2018Q2

REPORT INFORMATION
  Report Type: Spontaneous
  Country: US (occurrence: US)
  Receive Date: 20180628
  Receipt Date: 20180628
  Transmission Date: 20180711
  Serious: Yes (Disabling)
  Sender: FDA-Public Use
  Company Number: US-COVIS PHARMA B.V.-2018COV03693

PATIENT

DRUGS (3)
  1. TORADOL [Suspect]
     Active Substance: KETOROLAC TROMETHAMINE
     Route: 030
  2. CLONIDINE. [Suspect]
     Active Substance: CLONIDINE
  3. ZANAFLEX [Suspect]
     Active Substance: TIZANIDINE HYDROCHLORIDE

REACTIONS (2)
  - Chronic inflammatory demyelinating polyradiculoneuropathy [Not Recovered/Not Resolved]
  - Muscular weakness [Unknown]
